FAERS Safety Report 16862412 (Version 2)
Quarter: 2019Q4

REPORT INFORMATION
  Report Type: Spontaneous
  Country: BR (occurrence: BR)
  Receive Date: 20190927
  Receipt Date: 20191025
  Transmission Date: 20200122
  Serious: Yes (Other)
  Sender: FDA-Public Use
  Company Number: BR-JNJFOC-20190927602

PATIENT
  Age: 54 Year
  Sex: Male
  Weight: 111 kg

DRUGS (13)
  1. DARATUMUMAB [Suspect]
     Active Substance: DARATUMUMAB
     Route: 065
     Dates: start: 20190801
  2. DEXAMETHASONE. [Concomitant]
     Active Substance: DEXAMETHASONE
     Indication: PREMEDICATION
     Route: 065
  3. DEXAMETHASONE. [Concomitant]
     Active Substance: DEXAMETHASONE
     Route: 065
  4. CHLORIDE [Concomitant]
     Active Substance: CHLORIDE ION
     Indication: PREMEDICATION
     Route: 065
  5. DARATUMUMAB [Suspect]
     Active Substance: DARATUMUMAB
     Indication: PLASMA CELL MYELOMA
     Route: 042
     Dates: start: 20190801
  6. BORTEZOMIB. [Concomitant]
     Active Substance: BORTEZOMIB
     Indication: PLASMA CELL MYELOMA
     Route: 042
     Dates: start: 20190801
  7. ACYCLOVIR                          /00587301/ [Concomitant]
     Active Substance: ACYCLOVIR
     Indication: PRODUCT USED FOR UNKNOWN INDICATION
     Dosage: 12/12H
     Route: 065
  8. DEXAMETHASONE. [Concomitant]
     Active Substance: DEXAMETHASONE
     Route: 065
  9. LOSARTAN. [Concomitant]
     Active Substance: LOSARTAN
     Indication: PRODUCT USED FOR UNKNOWN INDICATION
     Route: 065
  10. BORTEZOMIB. [Concomitant]
     Active Substance: BORTEZOMIB
     Route: 042
     Dates: start: 20190801
  11. BACTRIM [Concomitant]
     Active Substance: SULFAMETHOXAZOLE\TRIMETHOPRIM
     Indication: PRODUCT USED FOR UNKNOWN INDICATION
     Route: 048
  12. PITAVASTATIN. [Concomitant]
     Active Substance: PITAVASTATIN CALCIUM
     Indication: PRODUCT USED FOR UNKNOWN INDICATION
     Dosage: PER NIGHT
     Route: 065
  13. ONDANSETRON [Concomitant]
     Active Substance: ONDANSETRON
     Indication: PREMEDICATION
     Route: 065

REACTIONS (9)
  - Dyspnoea [Recovered/Resolved]
  - Paraesthesia [Recovered/Resolved]
  - Psychomotor hyperactivity [Recovered/Resolved]
  - Rhinorrhoea [Recovered/Resolved]
  - Infusion related reaction [Recovered/Resolved]
  - Lacrimation increased [Recovered/Resolved]
  - Cough [Recovered/Resolved]
  - Hypothermia [Recovered/Resolved]
  - Asthenia [Recovered/Resolved]

NARRATIVE: CASE EVENT DATE: 20190801
